FAERS Safety Report 16010920 (Version 3)
Quarter: 2019Q1

REPORT INFORMATION
  Report Type: Spontaneous
  Country: US (occurrence: US)
  Receive Date: 20190227
  Receipt Date: 20190322
  Transmission Date: 20190418
  Serious: Yes (Hospitalization)
  Sender: FDA-Public Use
  Company Number: US-SHIRE-US201906168

PATIENT
  Sex: Female
  Weight: 74.38 kg

DRUGS (2)
  1. GAMMAGARD LIQUID [Suspect]
     Active Substance: HUMAN IMMUNOGLOBULIN G
     Indication: MYASTHENIA GRAVIS
     Dosage: 75 GRAM
     Route: 042
     Dates: start: 20190213
  2. GAMMAGARD LIQUID [Suspect]
     Active Substance: HUMAN IMMUNOGLOBULIN G
     Dosage: 75 GRAM
     Route: 042
     Dates: start: 20190214

REACTIONS (3)
  - Photophobia [Not Recovered/Not Resolved]
  - Off label use [Unknown]
  - Livedo reticularis [Not Recovered/Not Resolved]
